FAERS Safety Report 16102846 (Version 5)
Quarter: 2019Q1

REPORT INFORMATION
  Report Type: Spontaneous
  Country: JP (occurrence: JP)
  Receive Date: 20190321
  Receipt Date: 20190329
  Transmission Date: 20190418
  Serious: Yes (Death, Hospitalization, Other)
  Sender: FDA-Public Use
  Company Number: JP-ABBVIE-18K-087-2599192-00

PATIENT
  Age: 62 Year
  Sex: Male
  Weight: 76 kg

DRUGS (2)
  1. SODIUM VALPROATE [Concomitant]
     Active Substance: VALPROATE SODIUM
     Indication: EPILEPSY
     Route: 048
  2. MAVIRET [Suspect]
     Active Substance: GLECAPREVIR\PIBRENTASVIR
     Indication: CHRONIC HEPATITIS C
     Route: 048
     Dates: start: 20180608, end: 20180802

REACTIONS (11)
  - Pancreatitis necrotising [Unknown]
  - Pyrexia [Unknown]
  - Malaise [Unknown]
  - Pancreatitis acute [Unknown]
  - Acute hepatitis B [Fatal]
  - Hepatic atrophy [Unknown]
  - Arthralgia [Unknown]
  - Intestinal ischaemia [Unknown]
  - Hepatitis fulminant [Unknown]
  - Fluid retention [Unknown]
  - Circulatory collapse [Unknown]

NARRATIVE: CASE EVENT DATE: 20181212
